FAERS Safety Report 13828879 (Version 1)
Quarter: 2017Q3

REPORT INFORMATION
  Report Type: Spontaneous
  Country: JP (occurrence: JP)
  Receive Date: 20170803
  Receipt Date: 20170803
  Transmission Date: 20171127
  Serious: Yes (Other)
  Sender: FDA-Public Use
  Company Number: JP-ASTELLAS-2017JP014855

PATIENT
  Sex: Male

DRUGS (1)
  1. FUNGUARD [Suspect]
     Active Substance: MICAFUNGIN SODIUM
     Indication: FUNGAL INFECTION
     Route: 041

REACTIONS (1)
  - Pneumonia aspiration [Recovered/Resolved]
